FAERS Safety Report 13530229 (Version 1)
Quarter: 2017Q2

REPORT INFORMATION
  Report Type: Spontaneous
  Country: US (occurrence: US)
  Receive Date: 20170509
  Receipt Date: 20170509
  Transmission Date: 20170830
  Serious: No
  Sender: FDA-Public Use
  Company Number: US-UCBSA-2017002631

PATIENT
  Age: 88 Year
  Sex: Female

DRUGS (1)
  1. NEUPRO [Suspect]
     Active Substance: ROTIGOTINE
     Indication: PRODUCT USED FOR UNKNOWN INDICATION
     Dosage: 3 PATCHES (STRENGTH: 2 MG EACH) ON AT THE SAME TIME,(2 OLD PATCHES AND ONE NEW PATCH)

REACTIONS (2)
  - Personality change [Unknown]
  - Wrong technique in product usage process [Unknown]
